FAERS Safety Report 15073849 (Version 1)
Quarter: 2018Q2

REPORT INFORMATION
  Report Type: Spontaneous
  Country: US (occurrence: US)
  Receive Date: 20180627
  Receipt Date: 20180627
  Transmission Date: 20180711
  Serious: Yes (Other)
  Sender: FDA-Public Use
  Company Number: US-BRISTOL-MYERS SQUIBB COMPANY-BMS-2018-057330

PATIENT
  Sex: Male

DRUGS (1)
  1. ELIQUIS [Suspect]
     Active Substance: APIXABAN
     Indication: PULMONARY EMBOLISM
     Dosage: UNK
     Route: 065
     Dates: start: 201712

REACTIONS (6)
  - Penile pain [Unknown]
  - Penile swelling [Unknown]
  - Haematochezia [Unknown]
  - Penile haemorrhage [Unknown]
  - Cartilage injury [Unknown]
  - Off label use [Unknown]

NARRATIVE: CASE EVENT DATE: 2018
